FAERS Safety Report 8462391-4 (Version None)
Quarter: 2012Q2

REPORT INFORMATION
  Report Type: 
  Country: None (occurrence: None)
  Receive Date: 20120625
  Receipt Date: 20120618
  Transmission Date: 20120825
  Serious: Yes (Hospitalization, Other)
  Sender: FDA-Public Use
  Company Number: US-BAYER-2012-061608

PATIENT
  Age: 49 Year
  Sex: Female
  Weight: 69 kg

DRUGS (11)
  1. YASMIN [Suspect]
  2. OXYCODONE HCL AND ACETAMINOPHEN [Concomitant]
     Dosage: 5-325 TAB
     Dates: start: 20110608
  3. ASPIRIN [Concomitant]
  4. LEVOTHYROXINE SODIUM [Concomitant]
     Dosage: 0.1 MG, QD
     Route: 048
     Dates: start: 20110415
  5. WELLBUTRIN [Concomitant]
  6. HYDROCODONE BITARTRATE + ACETAMINOPHEN [Concomitant]
     Dosage: 5-500 TAB
     Dates: start: 20110607
  7. DROSPIRENONE AND ETHINYL ESTRADIOL [Suspect]
  8. IBUPROFEN [Concomitant]
     Dosage: UNK UNK, PRN
     Dates: start: 20110607
  9. LEVOTHYROXINE [Concomitant]
  10. SYNTHROID [Concomitant]
  11. BUPROPION HYDROCHLORIDE [Concomitant]
     Dosage: 150 MG, QD
     Route: 048
     Dates: start: 20110415

REACTIONS (2)
  - DEEP VEIN THROMBOSIS [None]
  - PULMONARY EMBOLISM [None]
